FAERS Safety Report 4785061-2 (Version None)
Quarter: 2005Q3

REPORT INFORMATION
  Report Type: 
  Country: None (occurrence: None)
  Receive Date: 20050930
  Receipt Date: 20050921
  Transmission Date: 20060218
  Serious: Yes (Hospitalization)
  Sender: FDA-Public Use
  Company Number: FR-ABBOTT-05P-056-0311626-00

PATIENT
  Age: 61 Year
  Sex: Male

DRUGS (5)
  1. DEPAKENE [Suspect]
     Indication: EPILEPSY
     Route: 048
     Dates: start: 20050629, end: 20050804
  2. ATENOLOL [Concomitant]
     Indication: CEREBRAL ATHEROSCLEROSIS
     Route: 048
  3. FLUINDIONE [Concomitant]
     Indication: CEREBRAL ATHEROSCLEROSIS
     Route: 048
  4. DIAZEPAM [Concomitant]
     Indication: EPILEPSY
     Route: 051
     Dates: start: 20050629, end: 20050629
  5. PAROXETINE HCL [Concomitant]
     Indication: BIPOLAR I DISORDER
     Route: 048

REACTIONS (4)
  - COGNITIVE DISORDER [None]
  - CONFUSIONAL STATE [None]
  - DISORIENTATION [None]
  - PSEUDODEMENTIA [None]
